FAERS Safety Report 5908664-8 (Version None)
Quarter: 2008Q3

REPORT INFORMATION
  Report Type: 
  Country: None (occurrence: None)
  Receive Date: 20080929
  Receipt Date: 20080918
  Transmission Date: 20090109
  Serious: Yes (Hospitalization)
  Sender: FDA-Public Use
  Company Number: US-GDP-08404654

PATIENT
  Age: 35 Year
  Sex: Female

DRUGS (4)
  1. ORACEA [Suspect]
     Indication: ROSACEA
     Dosage: (40 MG QD ORAL)
     Route: 048
     Dates: start: 20080401
  2. ESCITALOPRAM [Concomitant]
  3. METROGEL [Concomitant]
  4. AZELAIC ACID [Concomitant]

REACTIONS (5)
  - ABNORMAL SENSATION IN EYE [None]
  - BENIGN INTRACRANIAL HYPERTENSION [None]
  - DIZZINESS [None]
  - HEADACHE [None]
  - VIRAL INFECTION [None]
